FAERS Safety Report 4718309-0 (Version None)
Quarter: 2005Q3

REPORT INFORMATION
  Report Type: 
  Country: None (occurrence: None)
  Receive Date: 20050718
  Receipt Date: 20050718
  Transmission Date: 20060218
  Serious: Yes (Other)
  Sender: FDA-Public Use
  Company Number: None

PATIENT
  Age: 31 Year
  Sex: Female
  Weight: 68.0396 kg

DRUGS (1)
  1. ZICAM (ZN) [Suspect]
     Indication: NASOPHARYNGITIS
     Dosage: 1 SQUIRE PER NASAL
     Route: 045
     Dates: start: 20050713, end: 20050713

REACTIONS (9)
  - BURNING SENSATION [None]
  - DIARRHOEA [None]
  - DISTURBANCE IN ATTENTION [None]
  - HEADACHE [None]
  - LETHARGY [None]
  - MIGRAINE [None]
  - NAUSEA [None]
  - SOMNOLENCE [None]
  - VOMITING [None]
